FAERS Safety Report 9972297 (Version 1)
Quarter: 2014Q1

REPORT INFORMATION
  Report Type: Report from Study
  Country: US (occurrence: US)
  Receive Date: 20140306
  Receipt Date: 20140306
  Transmission Date: 20141002
  Serious: No
  Sender: FDA-Public Use
  Company Number: US-ABBVIE-13P-163-1148693-00

PATIENT
  Age: 58 Year
  Sex: Male
  Weight: 122.58 kg

DRUGS (11)
  1. HUMIRA [Suspect]
     Indication: PSORIASIS
     Dates: start: 20130829
  2. METHOTREXATE [Concomitant]
     Indication: PSORIASIS
  3. CLOBEX SPRAY [Concomitant]
     Indication: PSORIASIS
  4. CEREVE [Concomitant]
     Indication: PSORIASIS
  5. LIPITOR [Concomitant]
     Indication: BLOOD CHOLESTEROL
  6. ATENOLOL [Concomitant]
     Indication: CORONARY ARTERY DISEASE
  7. QUINIPRIL [Concomitant]
     Indication: BLOOD PRESSURE
  8. PAXIL [Concomitant]
     Indication: ANXIETY
  9. ALPRAZOLAM [Concomitant]
     Indication: ANXIETY
  10. ASPIRIN [Concomitant]
     Indication: CORONARY ARTERY DISEASE
  11. DIAZIDE [Concomitant]
     Indication: CARDIAC DISORDER

REACTIONS (2)
  - Pain in extremity [Not Recovered/Not Resolved]
  - Psoriasis [Not Recovered/Not Resolved]
